FAERS Safety Report 8110698 (Version 6)
Quarter: 2012Q4

REPORT INFORMATION
  Report Type: Report from Study
  Country: DE (occurrence: FR)
  Receive Date: 20110829
  Receipt Date: 20121016
  Transmission Date: 20130627
  Serious: Yes (Death, Hospitalization)
  Sender: FDA-Public Use
  Company Number: FR-BRISTOL-MYERS SQUIBB COMPANY-16003345

PATIENT
  Age: 68 Year
  Sex: Male
  Weight: 86 kg

DRUGS (11)
  1. CETUXIMAB [Suspect]
     Indication: COLORECTAL CANCER METASTATIC
     Dosage: first infusion on 12Jul2011
recent infusion date:04Aug11.
Cumulative dose:2000mg.
     Route: 042
     Dates: start: 20110712, end: 20110804
  2. IRINOTECAN [Suspect]
     Indication: COLORECTAL CANCER METASTATIC
     Dosage: recent infusion date:04Aug11.
Cumulative dose:660mg.
     Route: 042
     Dates: start: 20110712, end: 20110804
  3. FOLINIC ACID [Suspect]
     Indication: COLORECTAL CANCER METASTATIC
     Dosage: recent infusion date:04Aug11,Cumulative dose:1660mg.
     Route: 042
     Dates: start: 20110712, end: 20110804
  4. OXALIPLATIN [Suspect]
     Indication: COLORECTAL CANCER METASTATIC
     Dosage: recent infusion date:04Aug11.
Cumulative dose:340mg.
     Route: 042
     Dates: start: 20110712, end: 20110804
  5. 5-FLUOROURACIL [Suspect]
     Indication: COLORECTAL CANCER METASTATIC
     Dosage: recent inf:6Aug11.Cumulative dose:660mg and 9600mg Also IV.12-4Aug11 400mg/kg.12JUl-6Aug11 2400mg/m2
     Route: 040
     Dates: start: 20110712, end: 20110806
  6. ZANIDIP [Concomitant]
     Indication: HYPERTENSION
  7. COTAREG [Concomitant]
     Indication: HYPERTENSION
  8. CRESTOR [Concomitant]
     Indication: HYPERCHOLESTEROLAEMIA
  9. EUPANTOL [Concomitant]
     Indication: ABDOMINAL PAIN
  10. LANSOYL [Concomitant]
     Indication: ABDOMINAL PAIN
  11. DAFALGAN [Concomitant]
     Indication: ABDOMINAL PAIN

REACTIONS (2)
  - Multi-organ failure [Fatal]
  - Febrile neutropenia [Fatal]
